FAERS Safety Report 9999774 (Version 2)
Quarter: 2014Q1

REPORT INFORMATION
  Report Type: Spontaneous
  Country: US (occurrence: US)
  Receive Date: 20140312
  Receipt Date: 20140317
  Transmission Date: 20141002
  Serious: No
  Sender: FDA-Public Use
  Company Number: US-009507513-1403USA000993

PATIENT
  Sex: Male

DRUGS (1)
  1. PEGINTRON [Suspect]
     Indication: ACUTE HEPATITIS C
     Dosage: 150 MICROGRAM, QW, PEGINTRON RP
     Route: 058
     Dates: start: 201310

REACTIONS (1)
  - Drug ineffective [Unknown]
